FAERS Safety Report 5017385-8 (Version None)
Quarter: 2006Q2

REPORT INFORMATION
  Report Type: 
  Country: None (occurrence: None)
  Receive Date: 20060601
  Receipt Date: 20060601
  Transmission Date: 20061013
  Serious: Yes (Life-Threatening, Hospitalization)
  Sender: FDA-Public Use
  Company Number: None

PATIENT
  Age: 77 Year
  Sex: Male
  Weight: 70.2 kg

DRUGS (28)
  1. INSULIN [Suspect]
     Indication: DIABETES MELLITUS
     Dosage: 35 UNITSSUBCUTAN
     Route: 058
  2. INSULIN HUMAN  GLARGINE [Concomitant]
  3. SODIUM POLYSTYRENE SULFONATE [Concomitant]
  4. HYDROCHLOROTHIAZIDE [Concomitant]
  5. FUROSEMIDE [Concomitant]
  6. INSULIN REG HUMAN     NOVOLIN R [Concomitant]
  7. INSULIN ASPART [Concomitant]
  8. CIPROFLOXACIN HCL [Concomitant]
  9. BISACODYL [Concomitant]
  10. SENNOSIDES [Concomitant]
  11. ALBUTEROL SULFATE AUTOHALER [Concomitant]
  12. PSYLLIUM POWDER [Concomitant]
  13. METOPROLOL [Concomitant]
  14. ZINC SULFATE [Concomitant]
  15. ASCORBIC ACID [Concomitant]
  16. CALCIUM CARBONATE [Concomitant]
  17. MULTI-VITAMIN [Concomitant]
  18. FLUOXETINE HCL [Concomitant]
  19. DOCUSATE [Concomitant]
  20. ASPIRIN [Concomitant]
  21. RANITIDINE HCL [Concomitant]
  22. ISOSORBIDE DINITRATE [Concomitant]
  23. GABAPENTIN [Concomitant]
  24. METOCLOPRAMIDE HCL [Concomitant]
  25. NITROGLYCERIN [Concomitant]
  26. GLUCAGON [Concomitant]
  27. ACETAMINOPHEN [Concomitant]
  28. ORANGE JUICE [Concomitant]

REACTIONS (1)
  - HYPOGLYCAEMIA [None]
